FAERS Safety Report 17559090 (Version 2)
Quarter: 2020Q2

REPORT INFORMATION
  Report Type: Spontaneous
  Country: DE (occurrence: DE)
  Receive Date: 20200319
  Receipt Date: 20200609
  Transmission Date: 20200713
  Serious: Yes (Hospitalization, Disabling, Other)
  Sender: FDA-Public Use
  Company Number: DE-SA-2020SA065750

PATIENT

DRUGS (13)
  1. JODID [Concomitant]
     Active Substance: IODINE
     Indication: HYPOTHYROIDISM
     Dosage: UNK (1X1)
     Route: 048
  2. BISOPROLOL [Concomitant]
     Active Substance: BISOPROLOL
     Indication: PREMEDICATION
     Dosage: 1-0-0
     Route: 065
  3. URBASON [METHYLPREDNISOLONE] [Concomitant]
     Active Substance: METHYLPREDNISOLONE
     Dosage: 10 MG;1 EARLY
     Route: 065
     Dates: start: 20170222
  4. IODIDE [Concomitant]
     Active Substance: IODINE
     Dosage: 100 UG; 1-0-0
     Route: 065
  5. URBASON [METHYLPREDNISOLONE] [Concomitant]
     Active Substance: METHYLPREDNISOLONE
     Dosage: 25 MG;1 EARLY
     Route: 065
     Dates: start: 20170221
  6. AUBAGIO [Suspect]
     Active Substance: TERIFLUNOMIDE
     Dosage: 14 MG, QD
     Route: 048
     Dates: start: 2014
  7. URBASON [METHYLPREDNISOLONE] [Concomitant]
     Active Substance: METHYLPREDNISOLONE
     Dosage: 5MG;1 EARLY
     Route: 065
     Dates: start: 20170223
  8. TEMOZOLOMIDE. [Concomitant]
     Active Substance: TEMOZOLOMIDE
     Dosage: 140 MG, QD
     Route: 048
  9. PANTOZOL [Concomitant]
     Active Substance: PANTOPRAZOLE SODIUM
     Dosage: 40 MG
     Route: 065
  10. GRANISETRON [Concomitant]
     Active Substance: GRANISETRON
     Dosage: 2 MG, QD
     Route: 048
     Dates: start: 20200316
  11. LEVETIRACETAM. [Concomitant]
     Active Substance: LEVETIRACETAM
     Indication: EPILEPSY
     Dosage: 500 UG, BID
     Route: 048
     Dates: start: 20200201
  12. URBASON [METHYLPREDNISOLONE] [Concomitant]
     Active Substance: METHYLPREDNISOLONE
     Indication: MULTIPLE SCLEROSIS
     Dosage: 100 MG;1 EARLY
     Route: 065
     Dates: start: 20170219
  13. URBASON [METHYLPREDNISOLONE] [Concomitant]
     Active Substance: METHYLPREDNISOLONE
     Dosage: 50 MG;1 EARLY
     Route: 065
     Dates: start: 20170220

REACTIONS (13)
  - Glioblastoma [Unknown]
  - Brain neoplasm [Unknown]
  - Insomnia [Unknown]
  - Palpitations [Unknown]
  - Multiple sclerosis relapse [Unknown]
  - Feeling abnormal [Unknown]
  - Saccadic eye movement [Unknown]
  - Restlessness [Unknown]
  - Lhermitte^s sign [Unknown]
  - Asthenia [Unknown]
  - Histology abnormal [Unknown]
  - Metastasis [Unknown]
  - Aphasia [Unknown]

NARRATIVE: CASE EVENT DATE: 2020
